FAERS Safety Report 9379094 (Version 3)
Quarter: 2013Q3

REPORT INFORMATION
  Report Type: Spontaneous
  Country: JP (occurrence: JP)
  Receive Date: 20130702
  Receipt Date: 20130827
  Transmission Date: 20140515
  Serious: Yes (Other)
  Sender: FDA-Public Use
  Company Number: PHHY2013JP067302

PATIENT
  Sex: Male

DRUGS (1)
  1. VOLTAREN [Suspect]
     Indication: BACK PAIN
     Dosage: UNK UKN, UNK
     Route: 048

REACTIONS (11)
  - Intestinal villi atrophy [Recovering/Resolving]
  - Duodenal stenosis [Recovering/Resolving]
  - Duodenal scarring [Recovering/Resolving]
  - Enterocolitis [Recovering/Resolving]
  - Duodenal ulcer [Recovering/Resolving]
  - Intestinal ulcer [Recovering/Resolving]
  - Gastric ulcer [Recovering/Resolving]
  - Duodenal obstruction [Recovering/Resolving]
  - Gastrointestinal oedema [Recovering/Resolving]
  - Decreased appetite [Recovering/Resolving]
  - Weight decreased [Recovering/Resolving]
